FAERS Safety Report 5106827-5 (Version None)
Quarter: 2006Q3

REPORT INFORMATION
  Report Type: 
  Country: None (occurrence: None)
  Receive Date: 20060918
  Receipt Date: 20060712
  Transmission Date: 20061208
  Serious: Yes (Death)
  Sender: FDA-Public Use
  Company Number: US-BRISTOL-MYERS SQUIBB COMPANY-13440706

PATIENT
  Age: 73 Year
  Sex: Female

DRUGS (5)
  1. MEGACE [Suspect]
     Indication: APPETITE DISORDER
     Route: 048
  2. FLUOROURACIL [Concomitant]
  3. LEUCOVORIN [Concomitant]
  4. OXALIPLATIN [Concomitant]
  5. AVASTIN [Concomitant]

REACTIONS (1)
  - MALIGNANT NEOPLASM PROGRESSION [None]
